FAERS Safety Report 19084576 (Version 1)
Quarter: 2021Q2

REPORT INFORMATION
  Report Type: Spontaneous
  Country: US (occurrence: US)
  Receive Date: 20210401
  Receipt Date: 20210401
  Transmission Date: 20210717
  Serious: No
  Sender: FDA-Public Use
  Company Number: US-IBSA PHARMA-2020-IBS-00697

PATIENT
  Age: 63 Year

DRUGS (15)
  1. NICKEL [Suspect]
     Active Substance: NICKEL
  2. FLECTOR [Suspect]
     Active Substance: DICLOFENAC EPOLAMINE
  3. TRIMETHOPRIM SULFAMETHOXAZOLE [Suspect]
     Active Substance: SULFAMETHOXAZOLE\TRIMETHOPRIM
  4. COBALT [Suspect]
     Active Substance: COBALT
  5. COLESEVELAM [Suspect]
     Active Substance: COLESEVELAM
  6. PALLADIUM [Suspect]
     Active Substance: PALLADIUM
  7. PIOGLITAZONE. [Suspect]
     Active Substance: PIOGLITAZONE
  8. DEXTROSE. [Suspect]
     Active Substance: DEXTROSE
  9. CODEINE [Suspect]
     Active Substance: CODEINE
  10. PSYLLIUM [PLANTAGO AFRA] [Suspect]
     Active Substance: PLANTAGO AFRA SEED
  11. SUCROSE [Suspect]
     Active Substance: SUCROSE
     Route: 061
  12. THIMEROSAL [Suspect]
     Active Substance: THIMEROSAL
  13. TRAMADOL. [Suspect]
     Active Substance: TRAMADOL
  14. NABUMETONE. [Suspect]
     Active Substance: NABUMETONE
  15. NIACIN. [Suspect]
     Active Substance: NIACIN

REACTIONS (1)
  - Drug hypersensitivity [Unknown]
